FAERS Safety Report 5869007-1 (Version None)
Quarter: 2008Q3

REPORT INFORMATION
  Report Type: 
  Country: None (occurrence: None)
  Receive Date: 20080903
  Receipt Date: 20080829
  Transmission Date: 20090109
  Serious: Yes (Death)
  Sender: FDA-Public Use
  Company Number: A0713326A

PATIENT
  Age: 51 Year
  Sex: Male
  Weight: 114.5 kg

DRUGS (3)
  1. AVANDIA [Suspect]
     Dosage: 2MG TWICE PER DAY
     Route: 048
     Dates: start: 20050113, end: 20060305
  2. REGULAR INSULIN [Concomitant]
     Dates: start: 19980101, end: 20050301
  3. GLARGINE [Concomitant]
     Dates: start: 20050301, end: 20060305

REACTIONS (3)
  - ACUTE MYOCARDIAL INFARCTION [None]
  - CARDIAC ARREST [None]
  - PAIN [None]
